FAERS Safety Report 21058505 (Version 3)
Quarter: 2022Q3

REPORT INFORMATION
  Report Type: Spontaneous
  Country: JP (occurrence: JP)
  Receive Date: 20220708
  Receipt Date: 20220825
  Transmission Date: 20221027
  Serious: Yes (Other)
  Sender: FDA-Public Use
  Company Number: JP-GSKNCCC-Case-01527984_AE-59844

PATIENT

DRUGS (1)
  1. SOTROVIMAB [Suspect]
     Active Substance: SOTROVIMAB
     Indication: COVID-19
     Dosage: 500 MG, SINGLE, 500 MG/100 ML/30 MINUTES
     Route: 042
     Dates: start: 20220701, end: 20220701

REACTIONS (4)
  - Anaphylactic reaction [Recovered/Resolved]
  - Obstructive airways disorder [Recovered/Resolved]
  - Burning sensation [Recovered/Resolved]
  - Throat tightness [Recovered/Resolved]

NARRATIVE: CASE EVENT DATE: 20220701
